FAERS Safety Report 7557033-6 (Version None)
Quarter: 2011Q2

REPORT INFORMATION
  Report Type: 
  Country: None (occurrence: None)
  Receive Date: 20110620
  Receipt Date: 20110607
  Transmission Date: 20111010
  Serious: Yes (Life-Threatening, Hospitalization, Other)
  Sender: FDA-Public Use
  Company Number: US-ROCHE-714014

PATIENT

DRUGS (3)
  1. BEVACIZUMAB [Suspect]
     Dosage: DRUG GIVEN OVER 30-90 MINUTES ON DAY 1, CYCLE 2., LAST DOSE PRIOR TO AE: 05 MAY 2010
     Route: 042
     Dates: start: 20100414
  2. CARBOPLATIN [Suspect]
     Dosage: DOSE REPORTED AS AUC 6 ON DAY 1.
     Route: 042
     Dates: start: 20100414
  3. PACLITAXEL [Suspect]
     Dosage: DRUG RECEIVED OVER 1 HOUR ON DAYS 1, 8 AND 15.
     Route: 042
     Dates: start: 20100414

REACTIONS (8)
  - WHITE BLOOD CELL COUNT DECREASED [None]
  - FEBRILE NEUTROPENIA [None]
  - OESOPHAGEAL PAIN [None]
  - HAEMOGLOBIN DECREASED [None]
  - DYSPNOEA [None]
  - GASTRIC HAEMORRHAGE [None]
  - OESOPHAGITIS [None]
  - NEUTROPHIL COUNT DECREASED [None]
